FAERS Safety Report 5507258-6 (Version None)
Quarter: 2007Q4

REPORT INFORMATION
  Report Type: 
  Country: None (occurrence: None)
  Receive Date: 20071106
  Receipt Date: 20071026
  Transmission Date: 20080405
  Serious: Yes (Hospitalization)
  Sender: FDA-Public Use
  Company Number: PHBS2007JP18018

PATIENT
  Age: 62 Year
  Sex: Male

DRUGS (5)
  1. ZOMETA [Suspect]
     Indication: METASTASES TO BONE
     Dates: start: 20071010
  2. LOCHOL [Concomitant]
     Dosage: 30 MG
     Route: 048
     Dates: end: 20071019
  3. ALDACTONE [Concomitant]
     Dates: end: 20071019
  4. LANSOPRAZOLE [Concomitant]
     Dates: start: 20071019
  5. BLOPRESS [Concomitant]
     Dosage: 8 MG
     Route: 048

REACTIONS (7)
  - ALANINE AMINOTRANSFERASE INCREASED [None]
  - ASPARTATE AMINOTRANSFERASE INCREASED [None]
  - BLOOD CREATINE PHOSPHOKINASE INCREASED [None]
  - LIVER DISORDER [None]
  - MYALGIA [None]
  - PYREXIA [None]
  - RHABDOMYOLYSIS [None]
